FAERS Safety Report 16260817 (Version 2)
Quarter: 2020Q1

REPORT INFORMATION
  Report Type: Spontaneous
  Country: CH (occurrence: CH)
  Receive Date: 20190501
  Receipt Date: 20200325
  Transmission Date: 20200409
  Serious: Yes (Hospitalization)
  Sender: FDA-Public Use
  Company Number: CH-ANIPHARMA-2019-CH-000023

PATIENT
  Age: 71 Year
  Sex: Female

DRUGS (9)
  1. BETASERC [Suspect]
     Active Substance: BETAHISTINE
     Dosage: 24 MG DAILY
     Route: 048
     Dates: start: 201812
  2. AMLODIPINE [Suspect]
     Active Substance: AMLODIPINE BESYLATE
     Dosage: 5 MG DAILY
     Route: 048
  3. ATACAND [Suspect]
     Active Substance: CANDESARTAN CILEXETIL
     Indication: PRODUCT USED FOR UNKNOWN INDICATION
     Dosage: 8 MG DAILY
     Route: 048
  4. NEXIUM [Suspect]
     Active Substance: ESOMEPRAZOLE MAGNESIUM
     Dosage: 20 MG DAILY / 20 MG DAILY
     Route: 048
     Dates: start: 20190430
  5. MOVICOL [Suspect]
     Active Substance: POLYETHYLENE GLYCOL 3350\POTASSIUM CHLORIDE\SODIUM BICARBONATE\SODIUM CHLORIDE
     Dosage: 1 DF PRN
     Route: 048
     Dates: end: 20190305
  6. PURSANA [Suspect]
     Active Substance: FIG FRUIT OIL\SORBITOL
     Dosage: 15 ML PRN
     Route: 048
  7. TOLVON [Concomitant]
     Active Substance: MIANSERIN
     Dosage: UNK
     Route: 065
     Dates: start: 20190109
  8. ZOLPIDEM [Suspect]
     Active Substance: ZOLPIDEM TARTRATE
     Dosage: 10 MG PRN
     Route: 048
     Dates: end: 20190305
  9. CALCIMAGON-D3 [Suspect]
     Active Substance: CALCIUM\CHOLECALCIFEROL
     Dosage: 500/800 MILLIGRAM/INTERNATIONAL UNIT, DAILY
     Route: 048

REACTIONS (1)
  - Abdominal pain [Not Recovered/Not Resolved]

NARRATIVE: CASE EVENT DATE: 201812
